FAERS Safety Report 8548416-6 (Version None)
Quarter: 2012Q3

REPORT INFORMATION
  Report Type: 
  Country: None (occurrence: None)
  Receive Date: 20120719
  Receipt Date: 20120719
  Transmission Date: 20120928
  Serious: No
  Sender: FDA-Public Use
  Company Number: None

PATIENT
  Sex: Male

DRUGS (1)
  1. ENBREL [Suspect]
     Indication: RHEUMATOID ARTHRITIS
     Dosage: 50 MG TWICE WEEKLY SUBCUTANEOUSLY
     Route: 058
     Dates: start: 20120618, end: 20120621

REACTIONS (2)
  - HYPOAESTHESIA [None]
  - PARAESTHESIA [None]
